FAERS Safety Report 6739149-7 (Version None)
Quarter: 2010Q2

REPORT INFORMATION
  Report Type: 
  Country: None (occurrence: None)
  Receive Date: 20100525
  Receipt Date: 20100513
  Transmission Date: 20101027
  Serious: No
  Sender: FDA-Public Use
  Company Number: US-JNJFOC-20100505522

PATIENT
  Sex: Female

DRUGS (1)
  1. FENTANYL CITRATE [Suspect]
     Indication: NECK PAIN
     Route: 062

REACTIONS (2)
  - ACCIDENTAL EXPOSURE [None]
  - DRUG SCREEN POSITIVE [None]
